FAERS Safety Report 8260245-X (Version None)
Quarter: 2012Q2

REPORT INFORMATION
  Report Type: 
  Country: None (occurrence: None)
  Receive Date: 20120404
  Receipt Date: 20120322
  Transmission Date: 20120825
  Serious: Yes (Hospitalization)
  Sender: FDA-Public Use
  Company Number: SE-MYLANLABS-2012S1006626

PATIENT
  Age: 55 Year
  Sex: Female

DRUGS (4)
  1. SIMVASTATIN [Concomitant]
     Route: 065
  2. METFORMIN HCL [Suspect]
     Indication: TYPE 2 DIABETES MELLITUS
     Route: 065
  3. RAMIPRIL [Suspect]
     Route: 065
  4. ATENOLOL [Concomitant]
     Route: 065

REACTIONS (4)
  - BLOOD PRESSURE IMMEASURABLE [None]
  - LACTIC ACIDOSIS [None]
  - RENAL FAILURE ACUTE [None]
  - HYPERKALAEMIA [None]
